FAERS Safety Report 10221630 (Version 1)
Quarter: 2014Q2

REPORT INFORMATION
  Report Type: Report from Study
  Country: US (occurrence: US)
  Receive Date: 20140606
  Receipt Date: 20140606
  Transmission Date: 20141212
  Serious: Yes (Hospitalization)
  Sender: FDA-Public Use
  Company Number: US-ABBVIE-14P-163-1242353-00

PATIENT
  Age: 71 Year
  Sex: Female
  Weight: 50.39 kg

DRUGS (3)
  1. HUMIRA [Suspect]
     Indication: PSORIATIC ARTHROPATHY
     Dates: start: 20140424, end: 20140424
  2. HUMIRA [Suspect]
     Dates: start: 20140428, end: 20140428
  3. IRON [Suspect]
     Indication: ANAEMIA

REACTIONS (6)
  - Hypophagia [Recovering/Resolving]
  - Faeces discoloured [Recovered/Resolved]
  - Skin swelling [Recovering/Resolving]
  - Tremor [Recovered/Resolved]
  - Psoriasis [Recovered/Resolved]
  - Thrombosis [Recovering/Resolving]
